FAERS Safety Report 10669186 (Version 7)
Quarter: 2015Q3

REPORT INFORMATION
  Report Type: Report from Study
  Country: US (occurrence: US)
  Receive Date: 20141222
  Receipt Date: 20150817
  Transmission Date: 20151125
  Serious: Yes (Other)
  Sender: FDA-Public Use
  Company Number: US-SA-2014SA174138

PATIENT
  Age: 60 Year
  Sex: Female

DRUGS (1)
  1. AUBAGIO [Suspect]
     Active Substance: TERIFLUNOMIDE
     Indication: MULTIPLE SCLEROSIS
     Route: 048
     Dates: start: 20141002

REACTIONS (15)
  - Balance disorder [Unknown]
  - Arthralgia [Unknown]
  - Pain in extremity [Unknown]
  - Pneumonia [Unknown]
  - Tooth extraction [Unknown]
  - Contusion [Not Recovered/Not Resolved]
  - Pyrexia [Unknown]
  - Fall [Unknown]
  - Bronchitis [Recovering/Resolving]
  - Salpingo-oophorectomy bilateral [Unknown]
  - Hypoaesthesia [Unknown]
  - Face injury [Unknown]
  - Ovarian cyst [Unknown]
  - Pain [Unknown]
  - Nerve compression [Unknown]

NARRATIVE: CASE EVENT DATE: 2014
